FAERS Safety Report 7849441-0 (Version None)
Quarter: 2011Q4

REPORT INFORMATION
  Report Type: 
  Country: None (occurrence: None)
  Receive Date: 20111026
  Receipt Date: 20111021
  Transmission Date: 20120403
  Serious: Yes (Hospitalization, Other)
  Sender: FDA-Public Use
  Company Number: US-BRISTOL-MYERS SQUIBB COMPANY-15903123

PATIENT
  Age: 49 Year
  Sex: Female

DRUGS (10)
  1. MDX-1338 [Suspect]
     Indication: ACUTE MYELOID LEUKAEMIA
     Dosage: ALSO TOOK 245MG ON 21JUN11.
     Route: 042
     Dates: start: 20110621
  2. MITOXANTRONE [Suspect]
     Indication: ACUTE MYELOID LEUKAEMIA
     Dates: start: 20110629, end: 20110703
  3. CYTARABINE [Suspect]
     Indication: ACUTE MYELOID LEUKAEMIA
     Dosage: NDC #55390-131-10
     Dates: start: 20110629, end: 20110703
  4. PREDNISONE [Concomitant]
  5. ETOPOSIDE [Suspect]
     Indication: ACUTE MYELOID LEUKAEMIA
     Dates: start: 20110629, end: 20110703
  6. LEVAQUIN [Concomitant]
     Dates: start: 20110310, end: 20110708
  7. FLUCONAZOLE [Concomitant]
     Dates: start: 20110629, end: 20110925
  8. ACYCLOVIR [Concomitant]
     Dates: start: 20110310
  9. DAPSONE [Concomitant]
     Dates: start: 20110630
  10. POSACONAZOLE [Concomitant]
     Dates: end: 20110708

REACTIONS (4)
  - FEBRILE NEUTROPENIA [None]
  - PNEUMONIA FUNGAL [None]
  - FUNGAL INFECTION [None]
  - MUCOSAL INFLAMMATION [None]
